FAERS Safety Report 9804511 (Version 2)
Quarter: 2014Q1

REPORT INFORMATION
  Report Type: Spontaneous
  Country: US (occurrence: US)
  Receive Date: 20140108
  Receipt Date: 20140108
  Transmission Date: 20141002
  Serious: Yes (Hospitalization)
  Sender: FDA-Public Use
  Company Number: US-B.I. PHARMACEUTICALS,INC./RIDGEFIELD-2013-BI-22429BP

PATIENT
  Age: 83 Year
  Sex: Male
  Weight: 77.11 kg

DRUGS (5)
  1. PRADAXA [Suspect]
     Dosage: 150 MG
     Route: 048
     Dates: start: 20101223, end: 201210
  2. PRADAXA [Suspect]
     Dosage: 75 MG
     Route: 048
     Dates: start: 201210, end: 20121205
  3. AMIODARONE [Concomitant]
  4. CEPHALEXIN [Concomitant]
  5. DIGOXIN [Concomitant]

REACTIONS (4)
  - Gastrointestinal haemorrhage [Recovered/Resolved]
  - Gastric ulcer [Unknown]
  - Gastrointestinal haemorrhage [Unknown]
  - Melaena [Recovered/Resolved]
